FAERS Safety Report 12376936 (Version 1)
Quarter: 2016Q2

REPORT INFORMATION
  Report Type: Report from Study
  Country: US (occurrence: US)
  Receive Date: 20160517
  Receipt Date: 20160517
  Transmission Date: 20160815
  Serious: No
  Sender: FDA-Public Use
  Company Number: US-MALLINCKRODT-T201503631

PATIENT
  Sex: Female

DRUGS (1)
  1. REPOSITORY CORTICOTROPIN INJECTION [Suspect]
     Active Substance: CORTICOTROPIN
     Indication: DERMATOMYOSITIS
     Dosage: 80U EVERY 3 DAYS
     Route: 065
     Dates: start: 20150429, end: 2015

REACTIONS (5)
  - Feeling jittery [Unknown]
  - Hair growth abnormal [Unknown]
  - Cushingoid [Unknown]
  - Vision blurred [Unknown]
  - Disturbance in attention [Unknown]
